FAERS Safety Report 5410317-X (Version None)
Quarter: 2007Q3

REPORT INFORMATION
  Report Type: 
  Country: None (occurrence: None)
  Receive Date: 20070808
  Receipt Date: 20070725
  Transmission Date: 20080115
  Serious: Yes (Hospitalization)
  Sender: FDA-Public Use
  Company Number: FABR-12092

PATIENT
  Age: 62 Year
  Sex: Male

DRUGS (4)
  1. FABRAZYME [Suspect]
     Indication: FABRY'S DISEASE
     Dosage: 1 MG/KG Q2WKS IV
     Route: 042
     Dates: start: 20020709, end: 20040107
  2. FABRAZYME [Suspect]
     Indication: FABRY'S DISEASE
     Dosage: 1 MG/KG Q2WKS IV
     Route: 042
     Dates: start: 20040205, end: 20050622
  3. FABRAZYME [Suspect]
     Indication: FABRY'S DISEASE
     Dosage: 70 MG Q2WKS IV
     Route: 042
  4. COUMADIN [Concomitant]

REACTIONS (14)
  - ASTHMA [None]
  - CARDIAC FAILURE CONGESTIVE [None]
  - CELLULITIS [None]
  - CHRONIC OBSTRUCTIVE PULMONARY DISEASE [None]
  - CONFUSIONAL STATE [None]
  - DEEP VEIN THROMBOSIS [None]
  - FLUID RETENTION [None]
  - HYPOKALAEMIA [None]
  - IMPLANTABLE DEFIBRILLATOR MALFUNCTION [None]
  - LEG AMPUTATION [None]
  - PANCREATITIS [None]
  - REFLUX OESOPHAGITIS [None]
  - SICK SINUS SYNDROME [None]
  - VENTRICULAR TACHYCARDIA [None]
